FAERS Safety Report 23988510 (Version 3)
Quarter: 2024Q3

REPORT INFORMATION
  Report Type: Spontaneous
  Country: BR (occurrence: BR)
  Receive Date: 20240619
  Receipt Date: 20240720
  Transmission Date: 20241017
  Serious: Yes (Death, Hospitalization, Other)
  Sender: CELLTRION
  Company Number: BR-CELLTRION INC.-2024BR014181

PATIENT

DRUGS (8)
  1. INFLIXIMAB [Suspect]
     Active Substance: INFLIXIMAB
     Indication: Colitis ulcerative
     Dosage: 5 MG/KG EVERY 8 WEEKS (CHANGED TO 10MG/KG) 3 AMPOULES (300 MG)
     Route: 042
     Dates: start: 20240223
  2. INFLIXIMAB [Suspect]
     Active Substance: INFLIXIMAB
     Dosage: 10 MG/KG EVERY 8 WEEKS 4 AMPOULES (400 MG)
     Route: 042
     Dates: start: 20240329
  3. PIPERACILLIN [Concomitant]
     Active Substance: PIPERACILLIN
     Indication: Product used for unknown indication
     Dosage: 4 G
     Route: 065
     Dates: start: 20240311, end: 20240318
  4. TAZOBACTAM [Concomitant]
     Active Substance: TAZOBACTAM
     Indication: Product used for unknown indication
     Dosage: 500 MG
     Route: 065
     Dates: start: 20240311, end: 20240318
  5. AZATHIOPRINE [Concomitant]
     Active Substance: AZATHIOPRINE
     Indication: Colitis
     Dosage: 50 MG 2 PILLS A DAY
     Route: 048
     Dates: start: 20240305, end: 20240401
  6. AZULFIDINE [Concomitant]
     Active Substance: SULFASALAZINE
     Indication: Colitis
     Dosage: 4 G PER DAY
     Route: 048
     Dates: start: 20240305, end: 20240401
  7. CIPROFLOXACIN [Concomitant]
     Active Substance: CIPROFLOXACIN
     Indication: Product used for unknown indication
     Dosage: UNK
     Route: 065
     Dates: start: 20240225, end: 20240301
  8. METRONIDAZOLE [Concomitant]
     Active Substance: METRONIDAZOLE
     Indication: Product used for unknown indication
     Dosage: UNK
     Route: 065
     Dates: start: 20240225, end: 20240301

REACTIONS (11)
  - Thrombocytopenia [Fatal]
  - White blood cell count decreased [Fatal]
  - Anaemia [Fatal]
  - Intentional product use issue [Fatal]
  - Malnutrition [Unknown]
  - Parenteral nutrition [Unknown]
  - Weight decreased [Unknown]
  - Asthenia [Unknown]
  - Tachycardia [Unknown]
  - Atypical pneumonia [Not Recovered/Not Resolved]
  - Contraindication to medical treatment [Unknown]

NARRATIVE: CASE EVENT DATE: 20240319
